FAERS Safety Report 9997857 (Version 2)
Quarter: 2014Q2

REPORT INFORMATION
  Report Type: Spontaneous
  Country: US (occurrence: US)
  Receive Date: 20140311
  Receipt Date: 20140515
  Transmission Date: 20141212
  Serious: Yes (Death)
  Sender: FDA-Public Use
  Company Number: US-PFIZER INC-2014067779

PATIENT
  Age: 64 Year
  Sex: Female

DRUGS (1)
  1. GENOTROPIN MQ [Suspect]
     Dosage: 0.6 MG, UNK
     Dates: start: 200202

REACTIONS (1)
  - Death [Fatal]
